FAERS Safety Report 4494339-1 (Version None)
Quarter: 2004Q4

REPORT INFORMATION
  Report Type: 
  Country: None (occurrence: None)
  Receive Date: 20041102
  Receipt Date: 20041020
  Transmission Date: 20050328
  Serious: Yes (Hospitalization, Other)
  Sender: FDA-Public Use
  Company Number: JP_041004909

PATIENT
  Age: 24 Year
  Sex: Male
  Weight: 74 kg

DRUGS (5)
  1. ZYPREXA [Suspect]
     Indication: SCHIZOPHRENIA
     Dosage: 5 MG DAY
     Dates: start: 20040508, end: 20040924
  2. LODOPIN (ZOTEPINE) [Concomitant]
  3. DIAZEPAM [Concomitant]
  4. HALCION [Concomitant]
  5. DEPAS (ETIZOLAM) [Concomitant]

REACTIONS (3)
  - BLOOD CREATINE PHOSPHOKINASE INCREASED [None]
  - HEPATIC FUNCTION ABNORMAL [None]
  - SOLILOQUY [None]
